FAERS Safety Report 21121127 (Version 8)
Quarter: 2023Q2

REPORT INFORMATION
  Report Type: Spontaneous
  Country: US (occurrence: US)
  Receive Date: 20220722
  Receipt Date: 20230518
  Transmission Date: 20230721
  Serious: No
  Sender: FDA-Public Use
  Company Number: US-PFIZER INC-PV202200026703

PATIENT
  Age: 88 Year
  Sex: Female

DRUGS (3)
  1. ZIRABEV [Suspect]
     Active Substance: BEVACIZUMAB-BVZR
     Indication: Colon cancer
     Dosage: 630 MG (INTRAVENOUSLY PIGGYBACK ONCE/630 MG ON DAY 1, 15, 29, 43)
     Route: 042
     Dates: start: 20220801
  2. ZIRABEV [Suspect]
     Active Substance: BEVACIZUMAB-BVZR
     Indication: Malignant pleural effusion
     Dosage: 630 MG (INTRAVENOUSLY PIGGYBACK ONCE/630 MG ON DAY 1, 15, 29, 43)
     Route: 042
     Dates: start: 20220815
  3. ZIRABEV [Suspect]
     Active Substance: BEVACIZUMAB-BVZR
     Indication: Bone neoplasm
     Dosage: 400 MG

REACTIONS (2)
  - Neoplasm progression [Unknown]
  - Incorrect dose administered [Unknown]
